FAERS Safety Report 21174231 (Version 1)
Quarter: 2022Q3

REPORT INFORMATION
  Report Type: Spontaneous
  Country: US (occurrence: US)
  Receive Date: 20220804
  Receipt Date: 20220804
  Transmission Date: 20221027
  Serious: Yes (Other)
  Sender: FDA-Public Use
  Company Number: US-NOVARTISPH-NVSC2022US175230

PATIENT
  Age: 11 Year
  Sex: Female

DRUGS (2)
  1. TRAMETINIB [Suspect]
     Active Substance: TRAMETINIB
     Indication: Astrocytoma, low grade
     Dosage: 0.025 MG/KG, QD
     Route: 065
  2. LENALIDOMIDE [Suspect]
     Active Substance: LENALIDOMIDE
     Indication: Astrocytoma, low grade
     Dosage: 25 MG/M2, QD, ON DAYS 1-21 OF EACH 28-DAY CYCLE
     Route: 065

REACTIONS (5)
  - Astrocytoma, low grade [Recovering/Resolving]
  - Malignant neoplasm progression [Recovering/Resolving]
  - Intracardiac thrombus [Recovered/Resolved]
  - Product use in unapproved indication [Unknown]
  - Product use issue [Unknown]
